FAERS Safety Report 15194394 (Version 1)
Quarter: 2018Q3

REPORT INFORMATION
  Report Type: Spontaneous
  Country: US (occurrence: US)
  Receive Date: 20180725
  Receipt Date: 20180725
  Transmission Date: 20181010
  Serious: No
  Sender: FDA-Public Use
  Company Number: US-VERTEX PHARMACEUTICALS-2018-005076

PATIENT
  Age: 37 Year
  Sex: Female

DRUGS (15)
  1. PULMOZYME [Concomitant]
     Active Substance: DORNASE ALFA
     Dosage: 2.5 MG
     Route: 055
  2. SALINE                             /00075401/ [Concomitant]
     Active Substance: SODIUM CHLORIDE
     Dosage: UNK
     Route: 045
  3. VITAMIN D                          /00107901/ [Concomitant]
     Active Substance: ERGOCALCIFEROL
     Dosage: 400 INTERNATIONAL UNIT
  4. ADVAIR HFA [Concomitant]
     Active Substance: FLUTICASONE PROPIONATE\SALMETEROL XINAFOATE
     Dosage: UNK
  5. SINGULAIR [Concomitant]
     Active Substance: MONTELUKAST SODIUM
     Dosage: 10 MG
  6. AZITHROMYCIN ANHYDROUS. [Concomitant]
     Active Substance: AZITHROMYCIN ANHYDROUS
     Dosage: 500 MG
     Route: 048
  7. NASONEX [Concomitant]
     Active Substance: MOMETASONE FUROATE
     Dosage: UNK
  8. BENADRYL [Concomitant]
     Active Substance: DIPHENHYDRAMINE HYDROCHLORIDE
  9. SYMDEKO [Suspect]
     Active Substance: IVACAFTOR\TEZACAFTOR
     Indication: CYSTIC FIBROSIS
     Dosage: UNK, BID
     Route: 048
     Dates: start: 2018
  10. XOLAIR [Concomitant]
     Active Substance: OMALIZUMAB
     Dosage: 300 MG
     Route: 058
  11. SUDAFED PE CONGESTION [Concomitant]
     Active Substance: PHENYLEPHRINE HYDROCHLORIDE
     Dosage: UNK
  12. VITAMIN K [Concomitant]
     Active Substance: PHYTONADIONE
     Dosage: UNK
  13. VITAMIN E                          /00110501/ [Concomitant]
     Active Substance: TOCOPHEROL
     Dosage: UNK
  14. CREON [Concomitant]
     Active Substance: PANCRELIPASE AMYLASE\PANCRELIPASE LIPASE\PANCRELIPASE PROTEASE
     Dosage: 12000 UNK
  15. XOPENEX [Concomitant]
     Active Substance: LEVALBUTEROL HYDROCHLORIDE
     Dosage: UNK

REACTIONS (1)
  - Mycotic allergy [Not Recovered/Not Resolved]

NARRATIVE: CASE EVENT DATE: 201806
